FAERS Safety Report 10240933 (Version 1)
Quarter: 2014Q2

REPORT INFORMATION
  Report Type: Spontaneous
  Country: US (occurrence: US)
  Receive Date: 20140617
  Receipt Date: 20140617
  Transmission Date: 20141212
  Serious: No
  Sender: FDA-Public Use
  Company Number: US-B.I. PHARMACEUTICALS,INC./RIDGEFIELD-2014-BI-25514BP

PATIENT
  Sex: Female

DRUGS (7)
  1. MOBIC [Suspect]
     Indication: ARTHRITIS
     Route: 065
  2. MOBIC [Suspect]
     Indication: PAIN IN EXTREMITY
  3. UNSPECIFIED MEDICATION [Concomitant]
     Indication: THYROID DISORDER
     Route: 065
  4. UNSPECIFIED MEDICATION [Concomitant]
     Indication: BLOOD PRESSURE ABNORMAL
     Route: 065
  5. TRAMADOL [Concomitant]
     Indication: PAIN
     Route: 065
  6. TOPOMAX [Concomitant]
     Route: 065
  7. UNSPECIFIED MEDICATION [Concomitant]
     Indication: BLOOD CHOLESTEROL
     Route: 065

REACTIONS (1)
  - Drug ineffective [Unknown]
